FAERS Safety Report 12099952 (Version 1)
Quarter: 2016Q1

REPORT INFORMATION
  Report Type: Report from Study
  Country: US (occurrence: US)
  Receive Date: 20160222
  Receipt Date: 20160222
  Transmission Date: 20160526
  Serious: Yes (Other)
  Sender: FDA-Public Use
  Company Number: US-BAYER-2016-033462

PATIENT
  Age: 40 Year
  Sex: Female

DRUGS (1)
  1. BETAFERON [Suspect]
     Active Substance: INTERFERON BETA-1B
     Indication: MULTIPLE SCLEROSIS
     Dosage: 1 ML (0.25 MG), UNK
     Route: 058
     Dates: start: 20160126, end: 20160212

REACTIONS (8)
  - Vomiting [None]
  - Pain [None]
  - Hypoaesthesia [None]
  - Fatigue [None]
  - Dyspnoea [None]
  - Hallucination, visual [None]
  - Hallucination, auditory [None]
  - Hypersensitivity [None]

NARRATIVE: CASE EVENT DATE: 20160212
